FAERS Safety Report 7060506-6 (Version None)
Quarter: 2010Q4

REPORT INFORMATION
  Report Type: 
  Country: None (occurrence: None)
  Receive Date: 20101025
  Receipt Date: 20101012
  Transmission Date: 20110411
  Serious: Yes (Hospitalization, Other)
  Sender: FDA-Public Use
  Company Number: US-CELGENEUS-163-21880-10091375

PATIENT
  Sex: Female

DRUGS (15)
  1. REVLIMID [Suspect]
     Route: 048
     Dates: start: 20090206, end: 20100929
  2. NEXIUM [Concomitant]
     Route: 048
  3. CARVEDILOL [Concomitant]
     Indication: HYPERTENSION
     Route: 065
  4. CARVEDILOL [Concomitant]
     Indication: CORONARY ARTERY DISEASE
  5. FUROSEMIDE [Concomitant]
     Route: 048
  6. FUROSEMIDE [Concomitant]
     Indication: CORONARY ARTERY DISEASE
  7. ASPIRIN [Concomitant]
     Indication: CORONARY ARTERY DISEASE
     Route: 048
  8. ZETIA [Concomitant]
     Route: 048
  9. POTASSIUM CHLORIDE [Concomitant]
     Route: 048
  10. ALDACTONE [Concomitant]
     Route: 048
  11. ALLOPURINOL [Concomitant]
     Indication: GOUT
     Route: 048
  12. DIGOXIN [Concomitant]
     Route: 048
  13. LEVOTHYROXINE [Concomitant]
     Indication: HYPOTHYROIDISM
     Route: 048
  14. RED BLOOD CELLS [Concomitant]
     Indication: PANCYTOPENIA
     Dosage: 2 UNITS
     Route: 051
     Dates: start: 20100928, end: 20100928
  15. RED BLOOD CELLS [Concomitant]
     Dosage: 2 UNITS
     Route: 051
     Dates: start: 20100929, end: 20100929

REACTIONS (10)
  - BRONCHITIS [None]
  - BRONCHOSPASM [None]
  - CARDIAC FAILURE [None]
  - DRUG INEFFECTIVE [None]
  - FLUID OVERLOAD [None]
  - GOUT [None]
  - MYALGIA [None]
  - PANCYTOPENIA [None]
  - PYREXIA [None]
  - SWELLING [None]
